FAERS Safety Report 6370221-X (Version None)
Quarter: 2009Q3

REPORT INFORMATION
  Report Type: 
  Country: None (occurrence: None)
  Receive Date: 20090923
  Receipt Date: 20090915
  Transmission Date: 20100115
  Serious: Yes (Death, Hospitalization)
  Sender: FDA-Public Use
  Company Number: ZA-AVENTIS-200918544GDDC

PATIENT
  Age: 37 Year
  Sex: Male
  Weight: 69.5 kg

DRUGS (2)
  1. ISONIAZID [Suspect]
     Route: 048
     Dates: start: 20090119, end: 20090614
  2. PYRIDOXINE [Suspect]
     Route: 048
     Dates: start: 20090119, end: 20090614

REACTIONS (1)
  - HIV INFECTION [None]
